FAERS Safety Report 6445414-3 (Version None)
Quarter: 2009Q4

REPORT INFORMATION
  Report Type: 
  Country: None (occurrence: None)
  Receive Date: 20091118
  Receipt Date: 20091108
  Transmission Date: 20100525
  Serious: Yes (Hospitalization)
  Sender: FDA-Public Use
  Company Number: PHHO2009AT11848

PATIENT
  Sex: Male
  Weight: 90 kg

DRUGS (1)
  1. RAD 666 RAD+TAB [Suspect]
     Indication: METASTATIC RENAL CELL CARCINOMA
     Dosage: 10MG, UNK
     Route: 048
     Dates: start: 20090728

REACTIONS (2)
  - ANAEMIA [None]
  - CYSTITIS HAEMORRHAGIC [None]
